FAERS Safety Report 10465720 (Version 2)
Quarter: 2015Q3

REPORT INFORMATION
  Report Type: Spontaneous
  Country: US (occurrence: US)
  Receive Date: 20140919
  Receipt Date: 20150716
  Transmission Date: 20151125
  Serious: Yes (Hospitalization, Other)
  Sender: FDA-Public Use
  Company Number: US-GLAXOSMITHKLINE-A1089774A

PATIENT
  Age: 66 Year
  Sex: Female

DRUGS (1)
  1. ADVAIR HFA [Suspect]
     Active Substance: FLUTICASONE PROPIONATE\SALMETEROL XINAFOATE
     Indication: DYSPNOEA
     Dosage: 500/50 MCG
     Route: 055
     Dates: start: 200309

REACTIONS (6)
  - Asthma [Unknown]
  - Hypoxia [Unknown]
  - Multiple allergies [Unknown]
  - Wheezing [Unknown]
  - Bronchospasm [Unknown]
  - Bronchitis [Unknown]

NARRATIVE: CASE EVENT DATE: 201310
